FAERS Safety Report 9866795 (Version 3)
Quarter: 2014Q2

REPORT INFORMATION
  Report Type: Spontaneous
  Country: CA (occurrence: CA)
  Receive Date: 20140204
  Receipt Date: 20140609
  Transmission Date: 20141212
  Serious: Yes (Hospitalization, Other)
  Sender: FDA-Public Use
  Company Number: CA-AMGEN-CANSP2014007040

PATIENT
  Age: 55 Year
  Sex: Female

DRUGS (5)
  1. PROLIA [Suspect]
     Indication: OSTEOPOROSIS POSTMENOPAUSAL
     Dosage: 60 MG, UNK
     Route: 065
     Dates: start: 20130204
  2. HUMIRA [Concomitant]
     Indication: RHEUMATOID ARTHRITIS
     Dosage: UNK UNK, Q2WK
  3. HYDROMORPHONE [Concomitant]
     Dosage: UNK UNK, AS NECESSARY
  4. VIT D [Concomitant]
     Dosage: 5000 IU, UNK
  5. PROVERA [Concomitant]

REACTIONS (9)
  - Haemoglobin abnormal [Recovered/Resolved]
  - Ankle arthroplasty [Unknown]
  - Arthrodesis [Unknown]
  - Post procedural complication [Unknown]
  - Postoperative wound complication [Unknown]
  - Pain [Unknown]
  - Malaise [Recovered/Resolved]
  - Mobility decreased [Recovered/Resolved]
  - Drug level decreased [Unknown]
